FAERS Safety Report 23917725 (Version 1)
Quarter: 2024Q2

REPORT INFORMATION
  Report Type: Spontaneous
  Country: PL (occurrence: PL)
  Receive Date: 20240530
  Receipt Date: 20240530
  Transmission Date: 20240716
  Serious: Yes (Other)
  Sender: FDA-Public Use
  Company Number: PL-GENMAB-2024-01882

PATIENT
  Age: 43 Year
  Sex: Female

DRUGS (2)
  1. EPCORITAMAB [Suspect]
     Active Substance: EPCORITAMAB
     Indication: Product used for unknown indication
     Dosage: UNK
     Route: 058
  2. EPCORITAMAB [Suspect]
     Active Substance: EPCORITAMAB
     Dosage: 48 MILLIGRAM
     Route: 058

REACTIONS (2)
  - Malignant neoplasm progression [Unknown]
  - Cytokine release syndrome [Unknown]
